FAERS Safety Report 19953448 (Version 2)
Quarter: 2021Q4

REPORT INFORMATION
  Report Type: Spontaneous
  Country: US (occurrence: US)
  Receive Date: 20211013
  Receipt Date: 20211014
  Transmission Date: 20220303
  Serious: No
  Sender: FDA-Public Use
  Company Number: US-TEVA-2021-US-1956736

PATIENT
  Age: 65 Year
  Sex: Female
  Weight: 99.79 kg

DRUGS (5)
  1. DEXTROAMPHETAMINE [Suspect]
     Active Substance: DEXTROAMPHETAMINE
     Indication: Neurological symptom
     Dosage: 5 MILLIGRAM DAILY; CUT IN HALF AND TOOK 5MG BY MOUTH PER DAY
     Route: 048
     Dates: start: 202105
  2. DEXTROAMPHETAMINE [Suspect]
     Active Substance: DEXTROAMPHETAMINE
     Indication: Asthenia
  3. DEXTROAMPHETAMINE [Suspect]
     Active Substance: DEXTROAMPHETAMINE
     Indication: Fatigue
  4. IBRANCE [Suspect]
     Active Substance: PALBOCICLIB
     Indication: Breast cancer metastatic
     Dosage: 75 OR 100S ONCE PER DAY BY MOUTH, 21 DAYS ON AND 7 DAYS OFF
     Route: 048
     Dates: start: 201902
  5. IBRANCE [Suspect]
     Active Substance: PALBOCICLIB
     Dosage: SHE STARTED ON 125 AND THEN THE DOSE WAS LOWERED, 21 DAYS ON AND 7 DAYS OFF
     Route: 048

REACTIONS (4)
  - Nausea [Recovering/Resolving]
  - Gastrointestinal pain [Recovering/Resolving]
  - Abdominal pain upper [Recovering/Resolving]
  - Product use in unapproved indication [Unknown]

NARRATIVE: CASE EVENT DATE: 20210101
